FAERS Safety Report 9260277 (Version 1)
Quarter: 2013Q2

REPORT INFORMATION
  Report Type: Spontaneous
  Country: DE (occurrence: DE)
  Receive Date: 20130429
  Receipt Date: 20130429
  Transmission Date: 20140414
  Serious: Yes (Other)
  Sender: FDA-Public Use
  Company Number: DE-INCYTE CORPORATION-2013IN000824

PATIENT
  Sex: Male

DRUGS (1)
  1. JAKAVI [Suspect]
     Dosage: 15 MG, BID
     Route: 065

REACTIONS (1)
  - Pneumonia [Unknown]
